FAERS Safety Report 8406721-8 (Version None)
Quarter: 2012Q2

REPORT INFORMATION
  Report Type: 
  Country: None (occurrence: None)
  Receive Date: 20120604
  Receipt Date: 20120531
  Transmission Date: 20120825
  Serious: Yes (Death, Hospitalization, Other)
  Sender: FDA-Public Use
  Company Number: PHHY2012MX044245

PATIENT
  Age: 73 Year
  Sex: Male

DRUGS (3)
  1. DIOVAN HCT [Suspect]
     Indication: HYPERTENSION
     Dosage: 1 DF (80/12.5 MG), DAILY
  2. PLAVIX [Concomitant]
     Indication: ANTICOAGULANT THERAPY
     Dosage: 0.5 D (75MG) DAILY
  3. CORDORONE [Concomitant]
     Dosage: 1 DF, QOD

REACTIONS (3)
  - OEDEMA PERIPHERAL [None]
  - CARDIAC FAILURE [None]
  - CARDIOGENIC SHOCK [None]
